FAERS Safety Report 6446099-2 (Version None)
Quarter: 2009Q4

REPORT INFORMATION
  Report Type: 
  Country: None (occurrence: None)
  Receive Date: 20091119
  Receipt Date: 20091109
  Transmission Date: 20100525
  Serious: No
  Sender: FDA-Public Use
  Company Number: US-JNJFOC-20091103257

PATIENT
  Sex: Female
  Weight: 83.01 kg

DRUGS (10)
  1. DURAGESIC-100 [Suspect]
     Route: 062
     Dates: end: 20090101
  2. DURAGESIC-100 [Suspect]
     Indication: DRUG USE FOR UNKNOWN INDICATION
     Route: 062
     Dates: end: 20090101
  3. FENTANYL CITRATE [Suspect]
     Indication: DRUG USE FOR UNKNOWN INDICATION
     Route: 062
     Dates: start: 20090101, end: 20090101
  4. DURAGESIC-100 [Suspect]
     Route: 062
     Dates: start: 20091108
  5. MORPHINE SULFATE [Concomitant]
     Indication: BREAKTHROUGH PAIN
     Route: 065
  6. ANTI-ASTHMA MEDICATION [Concomitant]
     Indication: ASTHMA
     Route: 065
  7. KLONOPIN [Concomitant]
     Indication: ANXIETY
     Route: 065
  8. ASPIRIN [Concomitant]
     Route: 065
  9. OMEPRAZOLE [Concomitant]
     Indication: GASTRIC DISORDER
     Route: 048
  10. ANALGESIC [Concomitant]
     Indication: PAIN IN EXTREMITY
     Route: 065

REACTIONS (7)
  - BODY TEMPERATURE INCREASED [None]
  - FATIGUE [None]
  - INADEQUATE ANALGESIA [None]
  - INAPPROPRIATE SCHEDULE OF DRUG ADMINISTRATION [None]
  - PAIN [None]
  - PRODUCT QUALITY ISSUE [None]
  - SOMNOLENCE [None]
